FAERS Safety Report 19018269 (Version 1)
Quarter: 2021Q1

REPORT INFORMATION
  Report Type: Spontaneous
  Country: GB (occurrence: GB)
  Receive Date: 20210316
  Receipt Date: 20210316
  Transmission Date: 20210420
  Serious: Yes (Death, Hospitalization, Other)
  Sender: FDA-Public Use
  Company Number: GB-MYE-2012S1010794AA

PATIENT
  Age: 40 Year
  Sex: Male
  Weight: 104 kg

DRUGS (16)
  1. ORAMORPH [Concomitant]
     Active Substance: MORPHINE SULFATE
     Indication: CROHN^S DISEASE
  2. HYDROXOCOBALAMIN [Concomitant]
     Active Substance: HYDROXOCOBALAMIN
     Indication: VITAMIN D DEFICIENCY
     Dosage: 1 DF,UNK
  3. CLARITHROMYCIN. [Suspect]
     Active Substance: CLARITHROMYCIN
     Indication: LOWER RESPIRATORY TRACT INFECTION
     Dosage: 500 MILLIGRAM, BID (1000 MG QD)
     Route: 048
     Dates: start: 20111028
  4. MULTIVITAMIN                       /07504101/ [Concomitant]
     Active Substance: VITAMINS
     Indication: PRODUCT USED FOR UNKNOWN INDICATION
     Dosage: 1 DOSAGE FORM, QD
  5. METHADONE [Suspect]
     Active Substance: METHADONE HYDROCHLORIDE
     Indication: PAIN
     Dosage: 90 MILLIGRAM, QD
     Route: 048
     Dates: start: 20111025
  6. LANSOPRAZOLE. [Concomitant]
     Active Substance: LANSOPRAZOLE
     Indication: GASTRITIS
     Dosage: 30 MILLIGRAM, QD
     Route: 048
     Dates: start: 20070219
  7. METHADONE [Suspect]
     Active Substance: METHADONE HYDROCHLORIDE
     Dosage: 80 MILLILITER, QD
     Route: 048
     Dates: start: 20111127
  8. ORAMORPH [Concomitant]
     Active Substance: MORPHINE SULFATE
     Indication: PAIN
     Dosage: 100 MILLIGRAM, QD
     Route: 048
     Dates: start: 201102, end: 20111025
  9. PARACETAMOL [Concomitant]
     Active Substance: ACETAMINOPHEN
     Indication: PAIN
     Dosage: 1 G,UNK
  10. HUMIRA [Suspect]
     Active Substance: ADALIMUMAB
     Indication: CROHN^S DISEASE
     Dosage: 40 DOSAGE FORM, BIWEEKLY
     Route: 030
     Dates: start: 20111005, end: 20111019
  11. VENTOLIN [Concomitant]
     Active Substance: ALBUTEROL SULFATE
     Indication: PRODUCT USED FOR UNKNOWN INDICATION
     Dosage: UNK
  12. MST CONTINUS [Concomitant]
     Active Substance: MORPHINE SULFATE
     Indication: PAIN
     Dosage: 20 MG,QD
     Route: 048
  13. METHADONE [Suspect]
     Active Substance: METHADONE HYDROCHLORIDE
     Dosage: 70 MILLILITER, QD
     Route: 048
     Dates: start: 20111028, end: 20111030
  14. ASCORBIC ACID. [Concomitant]
     Active Substance: ASCORBIC ACID
     Indication: PRODUCT USED FOR UNKNOWN INDICATION
     Dosage: UNK
     Route: 048
     Dates: start: 20111006
  15. ADCAL D3 [Concomitant]
     Active Substance: CALCIUM CARBONATE\CHOLECALCIFEROL
     Indication: CROHN^S DISEASE
     Dosage: 1 DOSAGE FORM, BID (2 DF QD)
     Route: 048
     Dates: start: 20110808
  16. DIAZEPAM. [Concomitant]
     Active Substance: DIAZEPAM
     Indication: ANXIETY
     Dosage: 2 MILLIGRAM, PRN
     Route: 048
     Dates: start: 20111019

REACTIONS (31)
  - Blood urine [Unknown]
  - Crohn^s disease [Unknown]
  - Tremor [Unknown]
  - Vision blurred [Unknown]
  - Dysarthria [Unknown]
  - C-reactive protein increased [Unknown]
  - Diplopia [Unknown]
  - Hiccups [Unknown]
  - White blood cell count increased [Unknown]
  - Immunosuppression [Unknown]
  - Aggression [Unknown]
  - Malaise [Unknown]
  - Pharyngeal erythema [Unknown]
  - Pain [Unknown]
  - Incorrect dose administered [Unknown]
  - Inhibitory drug interaction [Not Recovered/Not Resolved]
  - Dysuria [Unknown]
  - Vomiting [Unknown]
  - Diffuse alveolar damage [Fatal]
  - Hyperhidrosis [Unknown]
  - Oropharyngeal pain [Unknown]
  - Erythema [Unknown]
  - Rectal haemorrhage [Unknown]
  - Dizziness [Unknown]
  - Upper respiratory tract infection [Unknown]
  - Headache [Unknown]
  - Heart rate increased [Unknown]
  - Toxicity to various agents [Fatal]
  - Somnolence [Unknown]
  - Chest pain [Unknown]
  - Confusional state [Unknown]

NARRATIVE: CASE EVENT DATE: 20111027
